FAERS Safety Report 26165137 (Version 1)
Quarter: 2025Q4

REPORT INFORMATION
  Report Type: Spontaneous
  Country: US (occurrence: US)
  Receive Date: 20251216
  Receipt Date: 20251216
  Transmission Date: 20260118
  Serious: No
  Sender: BRAEBURN PHARMACEUTICALS
  Company Number: US-BRAEBURN PHARMACEUTICALS-US-BRA-25-000789

PATIENT

DRUGS (1)
  1. BRIXADI [Suspect]
     Active Substance: BUPRENORPHINE
     Indication: Product used for unknown indication
     Dosage: 96 MILLIGRAM
     Route: 064
     Dates: end: 202401

REACTIONS (6)
  - Tremor neonatal [Unknown]
  - Psychomotor hyperactivity [Unknown]
  - Infant irritability [Unknown]
  - Irregular sleep wake rhythm disorder [Unknown]
  - High-pitched crying [Unknown]
  - Foetal exposure during pregnancy [Unknown]

NARRATIVE: CASE EVENT DATE: 20240101
